FAERS Safety Report 23470842 (Version 2)
Quarter: 2024Q2

REPORT INFORMATION
  Report Type: Spontaneous
  Country: US (occurrence: US)
  Receive Date: 20240202
  Receipt Date: 20240510
  Transmission Date: 20240716
  Serious: Yes (Other)
  Sender: FDA-Public Use
  Company Number: US-BAYER-2024A017008

PATIENT
  Age: 74 Year
  Sex: Female

DRUGS (1)
  1. KERENDIA [Suspect]
     Active Substance: FINERENONE

REACTIONS (2)
  - Urinary tract disorder [Recovered/Resolved]
  - Cystitis interstitial [Not Recovered/Not Resolved]

NARRATIVE: CASE EVENT DATE: 20231231
